FAERS Safety Report 21309126 (Version 1)
Quarter: 2022Q3

REPORT INFORMATION
  Report Type: Spontaneous
  Country: US (occurrence: US)
  Receive Date: 20220908
  Receipt Date: 20220908
  Transmission Date: 20221026
  Serious: Yes (Other)
  Sender: FDA-Public Use
  Company Number: US-SA-SAC20220905000765

PATIENT
  Sex: Female

DRUGS (1)
  1. DUPIXENT [Suspect]
     Active Substance: DUPILUMAB
     Indication: Asthma
     Dosage: 200 MG, QOW,200 MG EVERY 2 WEEKS
     Route: 058
     Dates: start: 20190712

REACTIONS (2)
  - Atrial fibrillation [Unknown]
  - Impaired quality of life [Unknown]
